FAERS Safety Report 13261934 (Version 2)
Quarter: 2017Q1

REPORT INFORMATION
  Report Type: Spontaneous
  Country: AU (occurrence: AU)
  Receive Date: 20170222
  Receipt Date: 20170227
  Transmission Date: 20170428
  Serious: Yes (Life-Threatening, Disabling, Other)
  Sender: FDA-Public Use
  Company Number: AU-009507513-1702AUS008046

PATIENT
  Sex: Female

DRUGS (1)
  1. CELESTONE [Suspect]
     Active Substance: BETAMETHASONE
     Indication: DERMATITIS ATOPIC
     Dosage: UNK
     Dates: end: 201402

REACTIONS (14)
  - Eczema [Recovering/Resolving]
  - Asthma [Recovering/Resolving]
  - Pain [Recovering/Resolving]
  - Palpitations [Recovering/Resolving]
  - Hypersensitivity [Recovering/Resolving]
  - Seasonal allergy [Recovering/Resolving]
  - Eye pain [Recovering/Resolving]
  - Poor quality sleep [Recovering/Resolving]
  - Depression [Recovering/Resolving]
  - Asthenia [Recovering/Resolving]
  - Malaise [Recovering/Resolving]
  - Drug dependence [Recovering/Resolving]
  - Anxiety [Recovering/Resolving]
  - Immune system disorder [Recovering/Resolving]
